FAERS Safety Report 16687781 (Version 5)
Quarter: 2019Q3

REPORT INFORMATION
  Report Type: Spontaneous
  Country: US (occurrence: US)
  Receive Date: 20190809
  Receipt Date: 20190916
  Transmission Date: 20191004
  Serious: Yes (Other)
  Sender: FDA-Public Use
  Company Number: US-PFIZER INC-2019337814

PATIENT
  Age: 60 Year
  Sex: Female
  Weight: 70.31 kg

DRUGS (1)
  1. CELECOXIB. [Suspect]
     Active Substance: CELECOXIB
     Indication: ARTHRITIS
     Dosage: 200 MG, ONCE A DAY
     Route: 048
     Dates: start: 20190722

REACTIONS (4)
  - Pain [Unknown]
  - Gait disturbance [Recovering/Resolving]
  - Joint injury [Unknown]
  - Drug ineffective [Unknown]
